FAERS Safety Report 12744707 (Version 2)
Quarter: 2016Q3

REPORT INFORMATION
  Report Type: Spontaneous
  Country: BR (occurrence: BR)
  Receive Date: 20160915
  Receipt Date: 20160920
  Transmission Date: 20161109
  Serious: Yes (Other)
  Sender: FDA-Public Use
  Company Number: BR-JNJFOC-20160904547

PATIENT
  Sex: Male

DRUGS (3)
  1. IMOSEC [Suspect]
     Active Substance: LOPERAMIDE
     Indication: DIARRHOEA
     Dosage: LATE 2008
     Route: 065
     Dates: start: 2008
  2. IMOSEC [Suspect]
     Active Substance: LOPERAMIDE
     Indication: DIARRHOEA
     Route: 065
     Dates: start: 20160910
  3. IMOSEC [Suspect]
     Active Substance: LOPERAMIDE
     Indication: DIARRHOEA
     Route: 065
     Dates: end: 20160902

REACTIONS (3)
  - Inappropriate schedule of drug administration [Unknown]
  - Thyroid disorder [Unknown]
  - Lymphoma [Unknown]

NARRATIVE: CASE EVENT DATE: 2008
